FAERS Safety Report 10045818 (Version 1)
Quarter: 2014Q1

REPORT INFORMATION
  Report Type: Spontaneous
  Country: GB (occurrence: GB)
  Receive Date: 20140328
  Receipt Date: 20140328
  Transmission Date: 20141002
  Serious: Yes (Other)
  Sender: FDA-Public Use
  Company Number: PHHY2014GB034418

PATIENT
  Age: 18 Year
  Sex: Female
  Weight: 53.97 kg

DRUGS (1)
  1. PROPRANOLOL [Suspect]
     Indication: ANXIETY
     Dosage: 40 MG, UNK
     Route: 048
     Dates: start: 20140306

REACTIONS (5)
  - Chest discomfort [Not Recovered/Not Resolved]
  - Depression [Recovering/Resolving]
  - Peripheral coldness [Not Recovered/Not Resolved]
  - Nightmare [Recovering/Resolving]
  - Fatigue [Recovering/Resolving]
